FAERS Safety Report 11670420 (Version 3)
Quarter: 2016Q1

REPORT INFORMATION
  Report Type: Report from Study
  Country: SE (occurrence: SE)
  Receive Date: 20151028
  Receipt Date: 20160126
  Transmission Date: 20160525
  Serious: Yes (Hospitalization)
  Sender: FDA-Public Use
  Company Number: SE-AMGEN-SWENI2015111900

PATIENT
  Age: 52 Year
  Sex: Male

DRUGS (1)
  1. ENBREL [Suspect]
     Active Substance: ETANERCEPT
     Indication: RHEUMATOID ARTHRITIS
     Dosage: 50 MG, UNK
     Route: 065
     Dates: start: 20060216, end: 20150715

REACTIONS (2)
  - Cardiac failure [Unknown]
  - Cardiomyopathy [Unknown]

NARRATIVE: CASE EVENT DATE: 20150707
